FAERS Safety Report 4496530-7 (Version None)
Quarter: 2004Q4

REPORT INFORMATION
  Report Type: 
  Country: None (occurrence: None)
  Receive Date: 20041109
  Receipt Date: 20041021
  Transmission Date: 20050328
  Serious: Yes (Hospitalization)
  Sender: FDA-Public Use
  Company Number: NL-JNJFOC-20040905244

PATIENT
  Sex: Male

DRUGS (2)
  1. INFLIXIMAB, RECOMBINANT [Suspect]
     Dosage: TOTAL 405MG
     Route: 042
  2. INFLIXIMAB, RECOMBINANT [Suspect]
     Indication: UVEITIS
     Dosage: TOTAL 405MG
     Route: 042

REACTIONS (11)
  - ABDOMINAL PAIN [None]
  - ALANINE AMINOTRANSFERASE INCREASED [None]
  - BACK PAIN [None]
  - BLOOD PRESSURE DIASTOLIC DECREASED [None]
  - GRANULOMA [None]
  - HEADACHE [None]
  - LYMPHADENOPATHY [None]
  - MYALGIA [None]
  - PYREXIA [None]
  - SPLEEN DISORDER [None]
  - TUBERCULOSIS [None]
